FAERS Safety Report 14771257 (Version 1)
Quarter: 2018Q2

REPORT INFORMATION
  Report Type: Report from Study
  Country: US (occurrence: US)
  Receive Date: 20180417
  Receipt Date: 20180417
  Transmission Date: 20180711
  Serious: Yes (Other)
  Sender: FDA-Public Use
  Company Number: US-SHIRE-US201813628

PATIENT
  Sex: Male

DRUGS (1)
  1. GATTEX [Suspect]
     Active Substance: TEDUGLUTIDE\WATER
     Indication: COELIAC DISEASE
     Dosage: 3.8 MG, 1X/DAY:QD
     Route: 058
     Dates: start: 20170412

REACTIONS (4)
  - Nausea [Not Recovered/Not Resolved]
  - Pallor [Not Recovered/Not Resolved]
  - Pain [Not Recovered/Not Resolved]
  - Cholecystitis [Unknown]
